FAERS Safety Report 19353022 (Version 2)
Quarter: 2021Q3

REPORT INFORMATION
  Report Type: Spontaneous
  Country: JP (occurrence: JP)
  Receive Date: 20210531
  Receipt Date: 20210916
  Transmission Date: 20211014
  Serious: Yes (Other)
  Sender: FDA-Public Use
  Company Number: JP-PFIZER INC-2021594523

PATIENT
  Age: 87 Year
  Sex: Female

DRUGS (3)
  1. MYONAL [EPERISONE HYDROCHLORIDE] [Suspect]
     Active Substance: EPERISONE HYDROCHLORIDE
     Dosage: UNK
  2. LYRICA [Suspect]
     Active Substance: PREGABALIN
     Dosage: UNK
  3. ARICEPT [Suspect]
     Active Substance: DONEPEZIL HYDROCHLORIDE
     Dosage: UNK

REACTIONS (9)
  - Spinal compression fracture [Unknown]
  - Vomiting [Unknown]
  - Hypokalaemia [Unknown]
  - Dizziness [Unknown]
  - Urinary retention [Unknown]
  - Fall [Unknown]
  - Malaise [Unknown]
  - Pyelonephritis acute [Unknown]
  - Nausea [Unknown]
